FAERS Safety Report 4847806-2 (Version None)
Quarter: 2005Q4

REPORT INFORMATION
  Report Type: 
  Country: None (occurrence: None)
  Receive Date: 20051205
  Receipt Date: 20051124
  Transmission Date: 20060501
  Serious: Yes (Hospitalization)
  Sender: FDA-Public Use
  Company Number: B0400104A

PATIENT
  Age: 72 Year
  Sex: Female

DRUGS (13)
  1. PAROXETINE HCL [Suspect]
     Indication: DEPRESSION
     Dosage: 20 MG PER DAY
  2. AMITRIPTYLINE HCL [Suspect]
  3. LINEZOLID (LINEZOLID) (FORMULATION UNKNOWN) [Suspect]
     Dosage: 600 MG / SEE DOSAGE TEXT / UNKNOWN
  4. ALPRAZOLAM [Concomitant]
  5. VENLAFAXINE HYDROCHLORIDE [Concomitant]
  6. BISOPROLOL [Concomitant]
  7. CAPTOPRIL [Concomitant]
  8. TRAZODONE HCL [Concomitant]
  9. AZTREONAM [Concomitant]
  10. ALENDRONATE SODIUM [Concomitant]
  11. CALCIUM SALT [Concomitant]
  12. AMITRIPTYLINE HCL [Concomitant]
  13. ENOXAPARIN SODIUM [Concomitant]

REACTIONS (12)
  - AGITATION [None]
  - ASTHENIA [None]
  - CONFUSIONAL STATE [None]
  - DISORIENTATION [None]
  - DRUG INTERACTION [None]
  - HYPERTENSION [None]
  - HYPERTONIA [None]
  - HYPONATRAEMIA [None]
  - SEROTONIN SYNDROME [None]
  - SOMNOLENCE [None]
  - STAPHYLOCOCCAL INFECTION [None]
  - TACHYCARDIA [None]
